FAERS Safety Report 20503298 (Version 1)
Quarter: 2022Q1

REPORT INFORMATION
  Report Type: Report from Study
  Country: US (occurrence: US)
  Receive Date: 20220222
  Receipt Date: 20220222
  Transmission Date: 20220423
  Serious: Yes (Hospitalization)
  Sender: FDA-Public Use
  Company Number: US-PFIZER INC-202200280799

PATIENT
  Age: 21 Year
  Sex: Male
  Weight: 44 kg

DRUGS (12)
  1. VINCRISTINE SULFATE [Suspect]
     Active Substance: VINCRISTINE SULFATE
     Indication: Acute lymphocytic leukaemia
     Dosage: 2 MG, ONE TIME AS NEEDED
     Route: 042
     Dates: start: 20210716
  2. CYTARABINE [Suspect]
     Active Substance: CYTARABINE
     Indication: Acute lymphocytic leukaemia
     Dosage: 115 MG, MILLIGRAM/SQ. METER, AS NEEDED
     Route: 058
     Dates: start: 20210702
  3. METHOTREXATE SODIUM [Suspect]
     Active Substance: METHOTREXATE SODIUM
     Indication: Acute lymphocytic leukaemia
     Dosage: 15 MG, AS NEEDED
     Route: 037
     Dates: start: 20210702
  4. METHOTREXATE SODIUM [Suspect]
     Active Substance: METHOTREXATE SODIUM
     Indication: Acute lymphocytic leukaemia
     Dosage: 7500 MG, AS NEEDED
     Route: 042
     Dates: start: 20210910
  5. DOXORUBICIN HYDROCHLORIDE [Suspect]
     Active Substance: DOXORUBICIN HYDROCHLORIDE
     Indication: Acute lymphocytic leukaemia
     Dosage: 38 MG, WEEKLY
     Route: 042
     Dates: start: 20211119
  6. RUXOLITINIB [Suspect]
     Active Substance: RUXOLITINIB
     Indication: Acute lymphocytic leukaemia
     Dosage: 75 MG, TABLET, BID, Q14 DAYS
     Route: 048
     Dates: start: 20210702
  7. DEXAMETHASONE [Suspect]
     Active Substance: DEXAMETHASONE
     Indication: Acute lymphocytic leukaemia
     Dosage: 8 MG, TABLET, BID FOR 7 DAYS
     Route: 048
     Dates: start: 20211119
  8. PEGASPARGASE [Suspect]
     Active Substance: PEGASPARGASE
     Indication: Acute lymphocytic leukaemia
     Dosage: 3825 IU, AS NEEDED
     Route: 042
     Dates: start: 20010716
  9. CYCLOPHOSPHAMIDE [Suspect]
     Active Substance: CYCLOPHOSPHAMIDE
     Indication: Acute lymphocytic leukaemia
     Dosage: 1530 MG, AS NEEDED
     Route: 042
     Dates: start: 20210702
  10. LEUCOVORIN [Suspect]
     Active Substance: LEUCOVORIN
     Indication: Acute lymphocytic leukaemia
     Dosage: UNK, MILLIGRAM/SQ. METER;
     Route: 042
  11. MERCAPTOPURINE [Suspect]
     Active Substance: MERCAPTOPURINE
     Indication: Acute lymphocytic leukaemia
     Dosage: 60 MG/M2, AS NEEDED
     Route: 048
     Dates: start: 20210702
  12. THIOGUANINE [Suspect]
     Active Substance: THIOGUANINE
     Indication: Acute lymphocytic leukaemia
     Dosage: 640 MG, WEEKLY
     Route: 048
     Dates: start: 20210716

REACTIONS (6)
  - Febrile neutropenia [Recovered/Resolved]
  - Pancreatitis [Recovered/Resolved]
  - Nausea [Recovered/Resolved]
  - Feeding intolerance [Recovering/Resolving]
  - Nausea [Not Recovered/Not Resolved]
  - Vomiting [Recovered/Resolved]

NARRATIVE: CASE EVENT DATE: 20211208
